FAERS Safety Report 24641383 (Version 1)
Quarter: 2024Q4

REPORT INFORMATION
  Report Type: Spontaneous
  Country: US (occurrence: US)
  Receive Date: 20241120
  Receipt Date: 20241120
  Transmission Date: 20250115
  Serious: Yes (Death)
  Sender: ZEALAND PHARMACEUTICALS
  Company Number: US-ZPPROD-ZP24US000953

PATIENT

DRUGS (4)
  1. ZEGALOGUE [Suspect]
     Active Substance: DASIGLUCAGON
  2. NOVOLOG [Suspect]
     Active Substance: INSULIN ASPART
     Indication: Diabetes mellitus
  3. OZEMPIC [Suspect]
     Active Substance: SEMAGLUTIDE
     Indication: Diabetes mellitus
     Dosage: 0.25/0.50 MILLIGRAM
  4. TRESIBA [Suspect]
     Active Substance: INSULIN DEGLUDEC
     Indication: Diabetes mellitus
     Dosage: 200 INTERNATIONAL UNIT PER MILLILITRE

REACTIONS (1)
  - Death [Fatal]

NARRATIVE: CASE EVENT DATE: 20241111
